FAERS Safety Report 7211039-5 (Version None)
Quarter: 2011Q1

REPORT INFORMATION
  Report Type: 
  Country: None (occurrence: None)
  Receive Date: 20110105
  Receipt Date: 20101228
  Transmission Date: 20110831
  Serious: Yes (Other)
  Sender: FDA-Public Use
  Company Number: BR-ABBOTT-10P-020-0654076-00

PATIENT
  Sex: Female
  Weight: 48 kg

DRUGS (12)
  1. DIPYRONE [Concomitant]
     Indication: PAIN
     Dosage: 35 DROPS DAILY
     Route: 048
  2. CHOLECALCIFEROL [Concomitant]
     Indication: OSTEOPOROSIS
     Dates: start: 20100101
  3. HUMIRA [Suspect]
     Indication: RHEUMATOID ARTHRITIS
     Route: 058
     Dates: start: 20100413, end: 20100801
  4. PREDNISONE [Concomitant]
     Dosage: 0.5 IN 24 HOURS
     Route: 048
     Dates: start: 19990101
  5. METHOTREXATE [Concomitant]
     Indication: RHEUMATOID ARTHRITIS
     Route: 048
     Dates: start: 20100101
  6. GARDENAL [Concomitant]
     Indication: CONVULSION
     Route: 048
     Dates: start: 19710101
  7. PREDNISONE [Suspect]
     Indication: RHEUMATOID ARTHRITIS
     Route: 048
     Dates: start: 19990101
  8. RIVOTRIL [Concomitant]
     Indication: ANXIOLYTIC THERAPY
     Dosage: 0.5 IN 24 HOURS
     Route: 048
  9. CALCIUM [Concomitant]
     Indication: OSTEOPOROSIS
     Route: 048
     Dates: start: 20090101
  10. PURAN T4 [Concomitant]
     Indication: HORMONE REPLACEMENT THERAPY
     Route: 048
     Dates: start: 20100719
  11. PARACETAMOL [Concomitant]
     Indication: PAIN
     Dosage: 1 IN 24 HOURS IF PRESENTS PAIN
     Route: 048
     Dates: start: 20100101
  12. NEOSALDINA [Concomitant]
     Indication: HEADACHE
     Route: 048
     Dates: start: 20100101

REACTIONS (12)
  - FOOT DEFORMITY [None]
  - ARTHRALGIA [None]
  - THYROID NEOPLASM [None]
  - FINGER DEFORMITY [None]
  - DIARRHOEA [None]
  - PRURITUS [None]
  - WOUND [None]
  - LOCAL SWELLING [None]
  - HAND DEFORMITY [None]
  - JOINT SWELLING [None]
  - PAIN IN EXTREMITY [None]
  - WEIGHT DECREASED [None]
